FAERS Safety Report 24746317 (Version 1)
Quarter: 2024Q4

REPORT INFORMATION
  Report Type: Report from Study
  Country: US (occurrence: US)
  Receive Date: 20241218
  Receipt Date: 20241218
  Transmission Date: 20250115
  Serious: Yes (Hospitalization, Other)
  Sender: ALEXION PHARMACEUTICALS
  Company Number: US-AstraZeneca-CH-00766155A

PATIENT
  Weight: 83.5 kg

DRUGS (10)
  1. OLAPARIB [Suspect]
     Active Substance: OLAPARIB
     Indication: Pancreatic carcinoma
  2. OLAPARIB [Suspect]
     Active Substance: OLAPARIB
     Route: 048
  3. OLAPARIB [Suspect]
     Active Substance: OLAPARIB
  4. OLAPARIB [Suspect]
     Active Substance: OLAPARIB
     Route: 048
  5. SERTRALINE HYDROCHLORIDE [Concomitant]
     Active Substance: SERTRALINE HYDROCHLORIDE
     Route: 065
  6. SERTRALINE HYDROCHLORIDE [Concomitant]
     Active Substance: SERTRALINE HYDROCHLORIDE
     Route: 065
  7. SIMVASTATIN [Concomitant]
     Active Substance: SIMVASTATIN
     Route: 065
  8. SIMVASTATIN [Concomitant]
     Active Substance: SIMVASTATIN
     Route: 065
  9. VITAMIN D3 [Concomitant]
     Active Substance: CHOLECALCIFEROL
     Route: 065
  10. VITAMIN D3 [Concomitant]
     Active Substance: CHOLECALCIFEROL
     Route: 065

REACTIONS (3)
  - Malignant neoplasm progression [Unknown]
  - Bacterial infection [Unknown]
  - Drug ineffective [Unknown]
